FAERS Safety Report 15471001 (Version 2)
Quarter: 2018Q4

REPORT INFORMATION
  Report Type: Report from Study
  Country: DE (occurrence: DE)
  Receive Date: 20181006
  Receipt Date: 20181114
  Transmission Date: 20190205
  Serious: Yes (Hospitalization, Other)
  Sender: FDA-Public Use
  Company Number: DE-AUROBINDO-AUR-APL-2018-048861

PATIENT
  Age: 14 Year
  Sex: Female

DRUGS (3)
  1. CITALOPRAM [Suspect]
     Active Substance: CITALOPRAM HYDROBROMIDE
     Dosage: INCREASED TO 60 MG AFTER 11 WEEKS
     Route: 065
  2. CITALOPRAM [Suspect]
     Active Substance: CITALOPRAM HYDROBROMIDE
     Dosage: 800 MILLIGRAM, THIRTEEN TIMES HER DAILY DOSE
     Route: 065
  3. CITALOPRAM [Suspect]
     Active Substance: CITALOPRAM HYDROBROMIDE
     Indication: PSYCHOTHERAPY
     Dosage: 20 MILLIGRAM
     Route: 065

REACTIONS (6)
  - Toxicity to various agents [Recovered/Resolved]
  - Nervous system disorder [Recovered/Resolved]
  - Somnolence [Recovered/Resolved]
  - Suicide attempt [Recovered/Resolved]
  - Dizziness [Recovered/Resolved]
  - Electrocardiogram QT prolonged [Recovered/Resolved]
